FAERS Safety Report 13296051 (Version 1)
Quarter: 2017Q1

REPORT INFORMATION
  Report Type: Report from Study
  Country: CO (occurrence: CO)
  Receive Date: 20170304
  Receipt Date: 20170304
  Transmission Date: 20170428
  Serious: Yes (Other)
  Sender: FDA-Public Use
  Company Number: CO-AMGEN-COLSL2017031905

PATIENT
  Age: 61 Year
  Sex: Female

DRUGS (1)
  1. NPLATE [Suspect]
     Active Substance: ROMIPLOSTIM
     Indication: IMMUNE THROMBOCYTOPENIC PURPURA
     Dosage: 250 MUG, QWK
     Route: 058
     Dates: start: 20160805

REACTIONS (2)
  - Thrombocytopenia [Recovered/Resolved]
  - Thrombocytosis [Not Recovered/Not Resolved]

NARRATIVE: CASE EVENT DATE: 20170201
